FAERS Safety Report 25735774 (Version 1)
Quarter: 2025Q3

REPORT INFORMATION
  Report Type: Report from Study
  Country: GB (occurrence: GB)
  Receive Date: 20250828
  Receipt Date: 20250828
  Transmission Date: 20251021
  Serious: Yes (Other)
  Sender: NOVARTIS
  Company Number: GB-002147023-NVSC2025GB067016

PATIENT
  Age: 57 Year
  Sex: Female

DRUGS (2)
  1. MAYZENT [Suspect]
     Active Substance: SIPONIMOD
     Indication: Multiple sclerosis
     Dosage: 2 MG, QD
     Route: 048
     Dates: start: 20250421
  2. MAYZENT [Suspect]
     Active Substance: SIPONIMOD
     Route: 065
     Dates: end: 20250722

REACTIONS (10)
  - Multiple sclerosis [Unknown]
  - Pain [Unknown]
  - Muscle spasms [Unknown]
  - Dizziness [Recovered/Resolved]
  - Blood pressure increased [Unknown]
  - Chest pain [Unknown]
  - Back pain [Unknown]
  - Renal pain [Unknown]
  - Adverse drug reaction [Unknown]
  - Stress [Unknown]

NARRATIVE: CASE EVENT DATE: 20250421
